FAERS Safety Report 15127116 (Version 1)
Quarter: 2018Q3

REPORT INFORMATION
  Report Type: Spontaneous
  Country: IT (occurrence: IT)
  Receive Date: 20180710
  Receipt Date: 20180710
  Transmission Date: 20181010
  Serious: Yes (Hospitalization, Other)
  Sender: FDA-Public Use
  Company Number: IT-BAYER-2018-124876

PATIENT
  Age: 66 Year
  Sex: Male

DRUGS (3)
  1. STIVARGA [Suspect]
     Active Substance: REGORAFENIB
     Indication: RECTOSIGMOID CANCER
     Dosage: DAILY DOSE 160 MG (1?21)
     Route: 048
     Dates: start: 2014
  2. STIVARGA [Suspect]
     Active Substance: REGORAFENIB
     Indication: RECTOSIGMOID CANCER
     Dosage: DAILY DOSE 120 MG
     Route: 048
  3. OLMESARTAN [Concomitant]
     Active Substance: OLMESARTAN
     Indication: ESSENTIAL HYPERTENSION
     Dosage: 10 MG

REACTIONS (12)
  - Rectosigmoid cancer [None]
  - Transaminases increased [Recovering/Resolving]
  - Urinary tract infection bacterial [None]
  - Hypertension [Recovered/Resolved]
  - Strangury [None]
  - Rectal discharge [None]
  - Haematuria [None]
  - Metastases to adrenals [None]
  - Palmar-plantar erythrodysaesthesia syndrome [Recovered/Resolved]
  - Metastases to bladder [None]
  - Asthenia [None]
  - Decreased appetite [None]

NARRATIVE: CASE EVENT DATE: 2015
